FAERS Safety Report 23797266 (Version 1)
Quarter: 2024Q2

REPORT INFORMATION
  Report Type: Spontaneous
  Country: US (occurrence: US)
  Receive Date: 20240430
  Receipt Date: 20240430
  Transmission Date: 20240715
  Serious: Yes (Other)
  Sender: FDA-Public Use
  Company Number: US-ROCHE-3546204

PATIENT
  Sex: Male

DRUGS (9)
  1. VALGANCICLOVIR [Suspect]
     Active Substance: VALGANCICLOVIR
     Indication: Product used for unknown indication
  2. CELLCEPT [Suspect]
     Active Substance: MYCOPHENOLATE MOFETIL
     Indication: Renal transplant
     Dosage: 500 MG TWICE A DAY?DAILY DOSE: 1000 MILLIGRAM
     Route: 048
     Dates: start: 20240412
  3. CELLCEPT [Suspect]
     Active Substance: MYCOPHENOLATE MOFETIL
     Indication: Renal transplant
     Dosage: 1000 MG TWICE A DAY ?DAILY DOSE: 2000 MILLIGRAM
     Route: 048
  4. BACTRIM [Concomitant]
     Active Substance: SULFAMETHOXAZOLE\TRIMETHOPRIM
     Dosage: PER TABLET
  5. BACTRIM [Concomitant]
     Active Substance: SULFAMETHOXAZOLE\TRIMETHOPRIM
     Dosage: PER TABLET
  6. PREDNISONE [Concomitant]
     Active Substance: PREDNISONE
  7. LETERMOVIR [Concomitant]
     Active Substance: LETERMOVIR
  8. THYMOCYTE IMMUNE GLOBULIN NOS [Concomitant]
     Active Substance: THYMOCYTE IMMUNE GLOBULIN NOS
  9. BELATACEPT [Concomitant]
     Active Substance: BELATACEPT

REACTIONS (6)
  - Infection susceptibility increased [Unknown]
  - Immunodeficiency [Not Recovered/Not Resolved]
  - Neutropenia [Unknown]
  - Myelosuppression [Unknown]
  - Leukopenia [Unknown]
  - Disease susceptibility [Unknown]
